FAERS Safety Report 16257264 (Version 4)
Quarter: 2019Q3

REPORT INFORMATION
  Report Type: Report from Study
  Country: TR (occurrence: TR)
  Receive Date: 20190430
  Receipt Date: 20190829
  Transmission Date: 20191004
  Serious: Yes (Hospitalization)
  Sender: FDA-Public Use
  Company Number: TR-ROCHE-2308242

PATIENT
  Age: 68 Year
  Sex: Male
  Weight: 81 kg

DRUGS (28)
  1. RANITIDINE. [Concomitant]
     Active Substance: RANITIDINE
     Route: 065
     Dates: start: 20190502, end: 20190502
  2. RANITIDINE. [Concomitant]
     Active Substance: RANITIDINE
     Route: 065
     Dates: start: 20190523, end: 20190523
  3. RANITIDINE. [Concomitant]
     Active Substance: RANITIDINE
     Route: 065
     Dates: start: 20190705, end: 20190705
  4. PARACETAMOL [Concomitant]
     Active Substance: ACETAMINOPHEN
     Route: 065
     Dates: start: 20190729, end: 20190729
  5. NACL [Concomitant]
     Active Substance: SODIUM CHLORIDE
     Indication: PREMEDICATION
     Route: 065
     Dates: start: 20190228, end: 20190228
  6. NACL [Concomitant]
     Active Substance: SODIUM CHLORIDE
     Route: 065
     Dates: start: 20190320, end: 20190320
  7. NACL [Concomitant]
     Active Substance: SODIUM CHLORIDE
     Route: 065
     Dates: start: 20190410, end: 20190410
  8. PARACETAMOL [Concomitant]
     Active Substance: ACETAMINOPHEN
     Route: 065
     Dates: start: 20190228, end: 20190228
  9. NACL [Concomitant]
     Active Substance: SODIUM CHLORIDE
     Route: 065
     Dates: start: 20190502, end: 20190502
  10. NACL [Concomitant]
     Active Substance: SODIUM CHLORIDE
     Route: 065
     Dates: start: 20190729, end: 20190729
  11. RO6874281 (FAP IL2V MAB) [Suspect]
     Active Substance: SIMLUKAFUSP ALFA
     Indication: METASTATIC NEOPLASM
     Dosage: 20/MAR/2019 AT 11.20: DATE OF MOST RECENT DOSE OF RO6874281 PRIOR TO AE ONSET
     Route: 042
     Dates: start: 20190228
  12. METOPROLOL SUCCINATE. [Concomitant]
     Active Substance: METOPROLOL SUCCINATE
     Indication: ARTERIOSCLEROSIS CORONARY ARTERY
     Route: 065
     Dates: start: 2014
  13. RANITIDINE. [Concomitant]
     Active Substance: RANITIDINE
     Route: 065
     Dates: start: 20190729, end: 20190729
  14. PARACETAMOL [Concomitant]
     Active Substance: ACETAMINOPHEN
     Route: 065
     Dates: start: 20190523, end: 20190523
  15. PARACETAMOL [Concomitant]
     Active Substance: ACETAMINOPHEN
     Route: 065
     Dates: start: 20190705, end: 20190705
  16. NACL [Concomitant]
     Active Substance: SODIUM CHLORIDE
     Route: 065
     Dates: start: 20190705, end: 20190705
  17. ACETYLSALICYLIC ACID [Concomitant]
     Active Substance: ASPIRIN
     Indication: ARTERIOSCLEROSIS CORONARY ARTERY
     Route: 065
     Dates: start: 2009
  18. PARACETAMOL [Concomitant]
     Active Substance: ACETAMINOPHEN
     Indication: PREMEDICATION
     Route: 065
     Dates: start: 20190228, end: 20190228
  19. RANITIDINE. [Concomitant]
     Active Substance: RANITIDINE
     Route: 065
     Dates: start: 20190228, end: 20190228
  20. PARACETAMOL [Concomitant]
     Active Substance: ACETAMINOPHEN
     Route: 065
     Dates: start: 20190320, end: 20190320
  21. NACL [Concomitant]
     Active Substance: SODIUM CHLORIDE
     Route: 065
     Dates: start: 20190523, end: 20190523
  22. NACL [Concomitant]
     Active Substance: SODIUM CHLORIDE
     Route: 065
     Dates: start: 20190228, end: 20190228
  23. RANITIDINE. [Concomitant]
     Active Substance: RANITIDINE
     Indication: PREMEDICATION
     Route: 065
     Dates: start: 20190228, end: 20190228
  24. PARACETAMOL [Concomitant]
     Active Substance: ACETAMINOPHEN
     Route: 065
     Dates: start: 20190410, end: 20190410
  25. ATEZOLIZUMAB. [Suspect]
     Active Substance: ATEZOLIZUMAB
     Indication: METASTATIC NEOPLASM
     Dosage: START TIME OF MOST RECENT DOSE OF ATEZOLIZUMAB PRIOR TO AE ONSET AT 09.00?DATE OF MOST RECENT DOSE O
     Route: 041
     Dates: start: 20190228
  26. RANITIDINE. [Concomitant]
     Active Substance: RANITIDINE
     Route: 065
     Dates: start: 20190320, end: 20190320
  27. RANITIDINE. [Concomitant]
     Active Substance: RANITIDINE
     Route: 065
     Dates: start: 20190410, end: 20190410
  28. PARACETAMOL [Concomitant]
     Active Substance: ACETAMINOPHEN
     Route: 065
     Dates: start: 20190502, end: 20190502

REACTIONS (1)
  - Blood creatinine increased [Recovered/Resolved]

NARRATIVE: CASE EVENT DATE: 20190321
